FAERS Safety Report 19913630 (Version 2)
Quarter: 2021Q4

REPORT INFORMATION
  Report Type: Spontaneous
  Country: DE (occurrence: DE)
  Receive Date: 20211004
  Receipt Date: 20211119
  Transmission Date: 20220303
  Serious: Yes (Other)
  Sender: FDA-Public Use
  Company Number: DE-STADA-225864

PATIENT
  Age: 21 Year
  Sex: Female

DRUGS (3)
  1. AZITHROMYCIN [Suspect]
     Active Substance: AZITHROMYCIN
     Indication: Pharyngitis streptococcal
     Dosage: UNK
     Route: 048
  2. AZITHROMYCIN [Suspect]
     Active Substance: AZITHROMYCIN
     Dosage: UNK
  3. CEFUROXIME [Concomitant]
     Active Substance: CEFUROXIME
     Indication: Pharyngitis streptococcal
     Dosage: UNK
     Route: 048

REACTIONS (3)
  - Oesophagitis [Recovered/Resolved]
  - Oesophageal ulcer [Recovered/Resolved]
  - Oesophageal injury [Recovered/Resolved]
